FAERS Safety Report 5562119-1 (Version None)
Quarter: 2007Q4

REPORT INFORMATION
  Report Type: 
  Country: None (occurrence: None)
  Receive Date: 20071215
  Receipt Date: 20070928
  Transmission Date: 20080405
  Serious: No
  Sender: FDA-Public Use
  Company Number: US-AMGEN-STX243444

PATIENT
  Sex: Female

DRUGS (2)
  1. ENBREL [Suspect]
     Indication: PSORIASIS
     Route: 058
     Dates: start: 20061108
  2. CORTICOSTEROID NOS [Concomitant]
     Route: 061

REACTIONS (4)
  - DRUG INEFFECTIVE [None]
  - PAIN [None]
  - PUSTULAR PSORIASIS [None]
  - STAPHYLOCOCCAL INFECTION [None]
